FAERS Safety Report 8974516 (Version 1)
Quarter: 2012Q4

REPORT INFORMATION
  Report Type: 
  Country: US (occurrence: US)
  Receive Date: 20121220
  Receipt Date: 20121220
  Transmission Date: 20130627
  Serious: No
  Sender: FDA-Public Use
  Company Number: US-009507513-1212USA005453

PATIENT

DRUGS (2)
  1. JANUVIA [Suspect]
     Dosage: 100 mg, qd
     Route: 048
  2. JANUVIA [Suspect]
     Dosage: 50 mg, qd
     Route: 048

REACTIONS (2)
  - Hypoglycaemia [Unknown]
  - Gastrointestinal disorder [Unknown]
